FAERS Safety Report 5259180-0 (Version None)
Quarter: 2007Q1

REPORT INFORMATION
  Report Type: 
  Country: None (occurrence: None)
  Receive Date: 20070308
  Receipt Date: 20070305
  Transmission Date: 20070707
  Serious: Yes (Life-Threatening, Hospitalization, Other)
  Sender: FDA-Public Use
  Company Number: HQWYE386122FEB07

PATIENT
  Sex: Male
  Weight: 69 kg

DRUGS (5)
  1. GEMTUZUMAB OZOGAMICIN [Suspect]
     Indication: ACUTE MYELOID LEUKAEMIA
     Dosage: SINGLE DOSE: 5.5 MG; CUMULATIVE DOSE: 28.5 MG
     Route: 065
     Dates: start: 20061019, end: 20070109
  2. ZOFRAN [Concomitant]
     Dosage: UNKNOWN DOSE
     Route: 065
     Dates: start: 20070109, end: 20070117
  3. IDARUBICIN HCL [Suspect]
     Indication: ACUTE MYELOID LEUKAEMIA
     Dosage: SINGLE DOSE: 15 MG; CUMULATIVE DOSE: 45 MG
     Route: 065
     Dates: start: 20070109, end: 20070114
  4. ARACYTIN [Suspect]
     Indication: ACUTE MYELOID LEUKAEMIA
     Dosage: SINGLE DOSE: 190 MG; CUMULATIVE DOSE: 2290 MG
     Route: 065
     Dates: start: 20061203, end: 20070114
  5. ETOPOSIDE [Suspect]
     Indication: ACUTE MYELOID LEUKAEMIA
     Dosage: SINGLE DOSE: 190 MG; CUMULATIVE DOSE: 1140 MG
     Route: 065
     Dates: start: 20061203, end: 20070112

REACTIONS (2)
  - INFUSION SITE HAEMORRHAGE [None]
  - THROMBOCYTOPENIA [None]
